FAERS Safety Report 18072676 (Version 1)
Quarter: 2020Q3

REPORT INFORMATION
  Report Type: Spontaneous
  Country: US (occurrence: US)
  Receive Date: 20200727
  Receipt Date: 20200727
  Transmission Date: 20201103
  Serious: Yes (Hospitalization)
  Sender: FDA-Public Use
  Company Number: None

PATIENT
  Age: 59 Year
  Sex: Male
  Weight: 107 kg

DRUGS (2)
  1. CYCLOBENZAPRINE (CYCLOBENZAPRINE HCL 5MG TAB) [Suspect]
     Active Substance: CYCLOBENZAPRINE
     Indication: PAIN
     Route: 048
     Dates: start: 20200529, end: 20200602
  2. CYCLOBENZAPRINE (CYCLOBENZAPRINE HCL 10MG TAB) [Suspect]
     Active Substance: CYCLOBENZAPRINE
     Route: 048
     Dates: start: 20200602, end: 20200609

REACTIONS (5)
  - Condition aggravated [None]
  - Seizure [None]
  - Hallucination [None]
  - Suicidal ideation [None]
  - Hallucination, visual [None]

NARRATIVE: CASE EVENT DATE: 20200608
